FAERS Safety Report 6652231-8 (Version None)
Quarter: 2010Q1

REPORT INFORMATION
  Report Type: 
  Country: None (occurrence: None)
  Receive Date: 20100325
  Receipt Date: 20100318
  Transmission Date: 20100710
  Serious: Yes (Other)
  Sender: FDA-Public Use
  Company Number: US-GENENTECH-299437

PATIENT
  Sex: Female
  Weight: 72.562 kg

DRUGS (2)
  1. RITUXIMAB [Suspect]
     Indication: ALVEOLAR PROTEINOSIS
     Dosage: 1000 MG,
     Route: 042
     Dates: start: 20081001
  2. RITUXIMAB [Suspect]
     Dosage: 2/675 MG
     Route: 042
     Dates: start: 20090401

REACTIONS (1)
  - RESPIRATORY FAILURE [None]
